FAERS Safety Report 24787074 (Version 1)
Quarter: 2024Q4

REPORT INFORMATION
  Report Type: Report from Study
  Country: FR (occurrence: FR)
  Receive Date: 20241230
  Receipt Date: 20241230
  Transmission Date: 20250115
  Serious: Yes (Hospitalization, Other)
  Sender: JOHNSON AND JOHNSON
  Company Number: FR-JNJFOC-20241269659

PATIENT

DRUGS (2)
  1. INFLIXIMAB [Suspect]
     Active Substance: INFLIXIMAB
     Indication: Colitis ulcerative
     Route: 041
  2. AZATHIOPRINE [Suspect]
     Active Substance: AZATHIOPRINE
     Indication: Colitis ulcerative
     Route: 065

REACTIONS (11)
  - Cholangitis sclerosing [Unknown]
  - Pneumocystis jirovecii pneumonia [Unknown]
  - Clostridium difficile infection [Unknown]
  - Pyelonephritis acute [Unknown]
  - Adverse event [Unknown]
  - Phlebitis [Unknown]
  - Influenza like illness [Unknown]
  - Pilonidal disease [Unknown]
  - Herpes zoster [Unknown]
  - Abdominal pain [Unknown]
  - Rash [Unknown]
